FAERS Safety Report 8882102 (Version 1)
Quarter: 2012Q4

REPORT INFORMATION
  Report Type: 
  Country: FR (occurrence: FR)
  Receive Date: 20121102
  Receipt Date: 20121102
  Transmission Date: 20130627
  Serious: Yes (Hospitalization)
  Sender: FDA-Public Use
  Company Number: FR-PFIZER INC-2012272680

PATIENT
  Age: 79 Year
  Sex: Female

DRUGS (11)
  1. EUPANTOL [Suspect]
     Dosage: 20 mg, daily
     Route: 048
  2. PRADAXA [Interacting]
     Indication: ATRIAL FIBRILLATION
     Dosage: 220 mg, daily
     Route: 048
  3. BETASERC [Concomitant]
     Dosage: 24 mg, UNK
  4. LEVOTHYROX [Concomitant]
     Dosage: 50 ug, UNK
  5. COVERSYL [Concomitant]
     Dosage: 5 mg, UNK
  6. TAHOR [Concomitant]
     Dosage: 40 mg, UNK
  7. DIFFU K [Concomitant]
     Dosage: UNK
  8. TRAMADOL [Concomitant]
     Dosage: UNK
  9. LEXOMIL [Concomitant]
     Dosage: 12 mg, UNK
  10. LASILIX [Concomitant]
     Dosage: UNK
  11. FUMAFER [Concomitant]
     Dosage: UNK

REACTIONS (3)
  - Thrombosis [Recovering/Resolving]
  - Drug interaction [Recovering/Resolving]
  - Drug ineffective [Recovering/Resolving]
